FAERS Safety Report 12408290 (Version 3)
Quarter: 2016Q4

REPORT INFORMATION
  Report Type: Spontaneous
  Country: US (occurrence: US)
  Receive Date: 20160526
  Receipt Date: 20161024
  Transmission Date: 20170207
  Serious: No
  Sender: FDA-Public Use
  Company Number: US-BAYER-2016-095275

PATIENT
  Age: 21 Year
  Sex: Male

DRUGS (1)
  1. KOGENATE FS [Suspect]
     Active Substance: ANTIHEMOPHILIC FACTOR, HUMAN RECOMBINANT
     Indication: FACTOR VIII DEFICIENCY
     Dosage: 2000 IU, QOD
     Route: 042
     Dates: start: 20141008

REACTIONS (4)
  - Treatment noncompliance [None]
  - Drug dose omission [None]
  - Treatment noncompliance [None]
  - Drug dose omission [None]

NARRATIVE: CASE EVENT DATE: 20160720
